FAERS Safety Report 5745238-6 (Version None)
Quarter: 2008Q2

REPORT INFORMATION
  Report Type: 
  Country: None (occurrence: None)
  Receive Date: 20080521
  Receipt Date: 20080514
  Transmission Date: 20081010
  Serious: Yes (Hospitalization)
  Sender: FDA-Public Use
  Company Number: B0520251A

PATIENT
  Age: 50 Year
  Sex: Female
  Weight: 83 kg

DRUGS (6)
  1. LAPATINIB [Suspect]
     Dosage: 1500MG PER DAY
     Route: 048
     Dates: start: 20080503
  2. XELODA [Suspect]
     Route: 048
     Dates: start: 20080503
  3. DEXAMETHASONE TAB [Concomitant]
     Dosage: 8MG TWICE PER DAY
     Route: 048
  4. OXYCONTIN [Concomitant]
     Indication: PAIN
     Dosage: 30MG TWICE PER DAY
     Route: 048
  5. OMEPRAZOLE [Concomitant]
     Indication: DRUG USE FOR UNKNOWN INDICATION
     Dosage: 20MG PER DAY
     Route: 048
  6. METOCLOPRAMIDE [Concomitant]
     Indication: DRUG USE FOR UNKNOWN INDICATION
     Dosage: 10MG THREE TIMES PER DAY
     Route: 048

REACTIONS (3)
  - ASTHENIA [None]
  - FALL [None]
  - HYPOKALAEMIA [None]
